FAERS Safety Report 4478946-8 (Version None)
Quarter: 2004Q4

REPORT INFORMATION
  Report Type: 
  Country: None (occurrence: None)
  Receive Date: 20041014
  Receipt Date: 20041001
  Transmission Date: 20050328
  Serious: Yes (Hospitalization)
  Sender: FDA-Public Use
  Company Number: 2004237020BR

PATIENT
  Sex: Male

DRUGS (2)
  1. BEXTRA IM/IV (PARECOXIB SODIUM) POWDER, STERILE [Suspect]
     Indication: ANAESTHESIA
     Dosage: IV
     Route: 042
     Dates: start: 20040910, end: 20040901
  2. BEXTRA [Suspect]
     Indication: ANAESTHESIA
     Dosage: 40 MG, ORAL
     Route: 048
     Dates: start: 20040901, end: 20040914

REACTIONS (4)
  - BLOOD ALKALINE PHOSPHATASE INCREASED [None]
  - RENAL FAILURE ACUTE [None]
  - RHABDOMYOLYSIS [None]
  - TORTICOLLIS [None]
